FAERS Safety Report 4435455-X (Version None)
Quarter: 2004Q3

REPORT INFORMATION
  Report Type: 
  Country: None (occurrence: None)
  Receive Date: 20040826
  Receipt Date: 20040819
  Transmission Date: 20050211
  Serious: Yes (Death)
  Sender: FDA-Public Use
  Company Number: 2004GB02008

PATIENT
  Sex: Female

DRUGS (2)
  1. SEROQUEL [Suspect]
     Dosage: TITRATED UP SLOWLY
  2. SEROQUEL [Suspect]
     Dosage: 25 MG BID PO
     Route: 048

REACTIONS (1)
  - MYOCARDIAL INFARCTION [None]
